FAERS Safety Report 10349388 (Version 1)
Quarter: 2014Q3

REPORT INFORMATION
  Report Type: Report from Study
  Country: US (occurrence: US)
  Receive Date: 20140730
  Receipt Date: 20140730
  Transmission Date: 20150326
  Serious: Yes (Other)
  Sender: FDA-Public Use
  Company Number: US-BRISTOL-MYERS SQUIBB COMPANY-21243274

PATIENT
  Age: 61 Year
  Sex: Female

DRUGS (1)
  1. ABATACEPT SUBQ INJECTION 125MG/ML [Suspect]
     Active Substance: ABATACEPT
     Route: 058

REACTIONS (2)
  - Arthropathy [Unknown]
  - Memory impairment [Unknown]

NARRATIVE: CASE EVENT DATE: 201407
